FAERS Safety Report 15960074 (Version 1)
Quarter: 2019Q1

REPORT INFORMATION
  Report Type: Spontaneous
  Country: US (occurrence: US)
  Receive Date: 20190214
  Receipt Date: 20190214
  Transmission Date: 20190417
  Serious: No
  Sender: FDA-Public Use
  Company Number: US-ROCHE-2140733

PATIENT

DRUGS (1)
  1. ERIVEDGE [Suspect]
     Active Substance: VISMODEGIB
     Indication: BASAL CELL NAEVUS SYNDROME
     Route: 065

REACTIONS (7)
  - Pain in extremity [Unknown]
  - Alopecia [Unknown]
  - Muscle disorder [Unknown]
  - Muscle spasms [Unknown]
  - Off label use [Unknown]
  - Myalgia [Unknown]
  - Intentional product use issue [Unknown]
